FAERS Safety Report 16904812 (Version 1)
Quarter: 2019Q4

REPORT INFORMATION
  Report Type: Spontaneous
  Country: US (occurrence: US)
  Receive Date: 20190819
  Receipt Date: 20190819
  Transmission Date: 20200122
  Serious: No
  Sender: FDA-Public Use
  Company Number: None

PATIENT
  Age: 69 Year
  Sex: Female
  Weight: 97.52 kg

DRUGS (1)
  1. TREMFYA [Suspect]
     Active Substance: GUSELKUMAB
     Indication: PSORIASIS
     Route: 058
     Dates: start: 201906

REACTIONS (7)
  - Abdominal discomfort [None]
  - Anxiety [None]
  - Dyskinesia [None]
  - Tremor [None]
  - Headache [None]
  - Respiratory disorder [None]
  - Muscular weakness [None]
